FAERS Safety Report 14236098 (Version 1)
Quarter: 2017Q4

REPORT INFORMATION
  Report Type: Spontaneous
  Country: US (occurrence: US)
  Receive Date: 20171129
  Receipt Date: 20171129
  Transmission Date: 20180321
  Serious: No
  Sender: FDA-Public Use
  Company Number: US-AUROBINDO-AUR-APL-2017-40273

PATIENT
  Sex: Male

DRUGS (1)
  1. FLUCONAZOLE TABLETS 100 MG [Suspect]
     Active Substance: FLUCONAZOLE
     Indication: ORAL CANDIDIASIS
     Dosage: UNK
     Route: 065
     Dates: start: 20170906

REACTIONS (2)
  - Product taste abnormal [Unknown]
  - Product solubility abnormal [Unknown]
